FAERS Safety Report 16391504 (Version 1)
Quarter: 2019Q2

REPORT INFORMATION
  Report Type: Report from Study
  Country: US (occurrence: US)
  Receive Date: 20190605
  Receipt Date: 20190605
  Transmission Date: 20190711
  Serious: Yes (Other)
  Sender: FDA-Public Use
  Company Number: US-ROCHE-2330124

PATIENT
  Age: 80 Year
  Sex: Female
  Weight: 67.65 kg

DRUGS (2)
  1. RITUXAN [Suspect]
     Active Substance: RITUXIMAB
     Indication: CHRONIC LYMPHOCYTIC LEUKAEMIA
     Route: 042
     Dates: start: 2007, end: 20070903
  2. GAZYVA [Suspect]
     Active Substance: OBINUTUZUMAB
     Indication: CHRONIC LYMPHOCYTIC LEUKAEMIA
     Dosage: 100 MG ON DAY 1, 900 MG ON DAY 2 AND THEN 1000 MG EVERY 3 TO 4 WEEKS
     Route: 042
     Dates: start: 20190529

REACTIONS (3)
  - Hypersensitivity [Recovered/Resolved]
  - Respiratory tract infection [Unknown]
  - Hypogammaglobulinaemia [Unknown]

NARRATIVE: CASE EVENT DATE: 20190529
